FAERS Safety Report 7896163-6 (Version None)
Quarter: 2011Q4

REPORT INFORMATION
  Report Type: 
  Country: None (occurrence: None)
  Receive Date: 20111106
  Receipt Date: 20110906
  Transmission Date: 20120403
  Serious: No
  Sender: FDA-Public Use
  Company Number: US-AMGEN-USASP2011045595

PATIENT
  Age: 61 Year
  Sex: Female

DRUGS (1)
  1. ENBREL [Suspect]
     Indication: RHEUMATOID ARTHRITIS
     Dosage: 50 MG, QWK
     Dates: start: 20110602, end: 20110902

REACTIONS (9)
  - LOCALISED INFECTION [None]
  - ORAL PAIN [None]
  - ORAL MUCOSAL ERYTHEMA [None]
  - ARTHRALGIA [None]
  - GLOSSODYNIA [None]
  - STOMATITIS [None]
  - GLOSSITIS [None]
  - TONGUE DISORDER [None]
  - JOINT DESTRUCTION [None]
